FAERS Safety Report 16645876 (Version 1)
Quarter: 2019Q3

REPORT INFORMATION
  Report Type: Spontaneous
  Country: US (occurrence: US)
  Receive Date: 20190730
  Receipt Date: 20190730
  Transmission Date: 20191004
  Serious: Yes (Other)
  Sender: FDA-Public Use
  Company Number: US-ROCHE-2364863

PATIENT
  Sex: Female
  Weight: 72.64 kg

DRUGS (1)
  1. LUCENTIS [Suspect]
     Active Substance: RANIBIZUMAB
     Indication: NEOVASCULAR AGE-RELATED MACULAR DEGENERATION
     Route: 050
     Dates: start: 2019

REACTIONS (6)
  - Eye disorder [Not Recovered/Not Resolved]
  - Eye discharge [Not Recovered/Not Resolved]
  - Photosensitivity reaction [Not Recovered/Not Resolved]
  - Suspected transmission of an infectious agent via product [Unknown]
  - Eye infection [Recovered/Resolved]
  - Eye pain [Not Recovered/Not Resolved]
